FAERS Safety Report 19604435 (Version 1)
Quarter: 2021Q3

REPORT INFORMATION
  Report Type: Other
  Country: US (occurrence: US)
  Receive Date: 20210723
  Receipt Date: 20210723
  Transmission Date: 20211014
  Serious: Yes (Death, Other)
  Sender: FDA-Public Use
  Company Number: US-APOTEX-2021AP023496

PATIENT
  Age: 48 Year
  Sex: Female

DRUGS (2)
  1. RANITIDINE TABLETS [Suspect]
     Active Substance: RANITIDINE HYDROCHLORIDE
     Indication: ABDOMINAL DISCOMFORT
     Dosage: DAILY
     Route: 065
     Dates: start: 201001, end: 201909
  2. ZANTAC [Suspect]
     Active Substance: RANITIDINE HYDROCHLORIDE
     Indication: ABDOMINAL DISCOMFORT
     Dosage: OTHER (UNKNOWN AT THIS TIME. )
     Route: 065
     Dates: start: 201001, end: 201909

REACTIONS (6)
  - Bladder cancer [Fatal]
  - Gastric cancer [Fatal]
  - Breast cancer [Fatal]
  - Hepatic cancer [Fatal]
  - Gastrointestinal carcinoma [Fatal]
  - Ovarian cancer [Fatal]

NARRATIVE: CASE EVENT DATE: 20180101
